FAERS Safety Report 16591336 (Version 1)
Quarter: 2019Q3

REPORT INFORMATION
  Report Type: Spontaneous
  Country: US (occurrence: US)
  Receive Date: 20190605
  Receipt Date: 20190605
  Transmission Date: 20191004
  Serious: No
  Sender: FDA-Public Use
  Company Number: None

PATIENT
  Age: 70 Year
  Sex: Female

DRUGS (2)
  1. DOCETAXEL INJ 20MG/ML [Suspect]
     Active Substance: DOCETAXEL
     Dosage: ?          OTHER FREQUENCY:OTHER;?
     Route: 043
     Dates: start: 201906
  2. GEMCITABINE. [Concomitant]
     Active Substance: GEMCITABINE

REACTIONS (1)
  - Product use issue [None]

NARRATIVE: CASE EVENT DATE: 20190605
